FAERS Safety Report 8461891-0 (Version None)
Quarter: 2012Q2

REPORT INFORMATION
  Report Type: 
  Country: None (occurrence: None)
  Receive Date: 20120619
  Receipt Date: 20120619
  Transmission Date: 20120825
  Serious: Yes (Hospitalization)
  Sender: FDA-Public Use
  Company Number: None

PATIENT
  Age: 55 Year
  Sex: Male
  Weight: 57.1532 kg

DRUGS (2)
  1. DALTEPARIN SODIUM [Suspect]
     Indication: THROMBOSIS PROPHYLAXIS
     Dosage: DALTEPARIN 5000IU DAILY SQ
     Route: 058
     Dates: start: 20120522, end: 20120618
  2. REVLIMID/DEXAMETHASONE 25MG DAILY X 21D/40MG-D 1 8 CELGENE/UNK [Suspect]
     Indication: MULTIPLE MYELOMA
     Dosage: REVLIMID 25MG/DEXAMETHASONE D1-21/1,8,15, 22 PO
     Route: 048
     Dates: start: 20120605, end: 20120611

REACTIONS (2)
  - BACK PAIN [None]
  - ABASIA [None]
